FAERS Safety Report 8126470-3 (Version None)
Quarter: 2012Q1

REPORT INFORMATION
  Report Type: 
  Country: None (occurrence: None)
  Receive Date: 20120209
  Receipt Date: 20120201
  Transmission Date: 20120608
  Serious: Yes (Other)
  Sender: FDA-Public Use
  Company Number: US-ASTRAZENECA-2012SE06911

PATIENT
  Age: 59 Year
  Sex: Female
  Weight: 95.3 kg

DRUGS (1)
  1. NEXIUM [Suspect]
     Indication: DYSPEPSIA
     Route: 048
     Dates: start: 20120101

REACTIONS (2)
  - INTESTINAL OBSTRUCTION [None]
  - FATIGUE [None]
